FAERS Safety Report 11275073 (Version 1)
Quarter: 2015Q3

REPORT INFORMATION
  Report Type: Spontaneous
  Country: NL (occurrence: NL)
  Receive Date: 20150716
  Receipt Date: 20150716
  Transmission Date: 20151125
  Serious: Yes (Hospitalization)
  Sender: FDA-Public Use
  Company Number: NL-AMGEN-NLDSP2015070901

PATIENT
  Age: 79 Year
  Sex: Female

DRUGS (1)
  1. ENBREL [Suspect]
     Active Substance: ETANERCEPT
     Indication: RHEUMATOID ARTHRITIS
     Dosage: 50 MG, 1X/WEEKLY
     Route: 065
     Dates: start: 20141021

REACTIONS (3)
  - Pyrexia [Recovering/Resolving]
  - Malaise [Recovering/Resolving]
  - Red blood cell sedimentation rate increased [Unknown]

NARRATIVE: CASE EVENT DATE: 2015
